FAERS Safety Report 8209951-3 (Version None)
Quarter: 2012Q1

REPORT INFORMATION
  Report Type: 
  Country: None (occurrence: None)
  Receive Date: 20120314
  Receipt Date: 20111102
  Transmission Date: 20120608
  Serious: No
  Sender: FDA-Public Use
  Company Number: US-ASTRAZENECA-2011SE66576

PATIENT
  Sex: Female

DRUGS (4)
  1. TOPROL-XL [Suspect]
     Indication: HYPERTENSION
     Route: 048
  2. TOPROL-XL [Suspect]
     Dosage: 50MG IN THE MORNING AND 25MG AT NIGHT TOTAL DAILY DOSAGE 75MG
     Route: 048
     Dates: start: 20110901
  3. TOPROL-XL [Suspect]
     Dosage: 50MG IN THE MORNING AND 25MG AT NIGHT TOTAL DAILY DOSAGE 75MG
     Route: 048
     Dates: start: 20110901
  4. TOPROL-XL [Suspect]
     Indication: SINUS TACHYCARDIA
     Route: 048

REACTIONS (2)
  - OFF LABEL USE [None]
  - DIPLOPIA [None]
